FAERS Safety Report 7818574-7 (Version None)
Quarter: 2011Q4

REPORT INFORMATION
  Report Type: 
  Country: None (occurrence: None)
  Receive Date: 20111017
  Receipt Date: 20111006
  Transmission Date: 20120403
  Serious: Yes (Other)
  Sender: FDA-Public Use
  Company Number: US-ASTRAZENECA-2010SE57709

PATIENT
  Age: 63 Year
  Sex: Female

DRUGS (1)
  1. NEXIUM [Suspect]
     Route: 048

REACTIONS (6)
  - ULCER HAEMORRHAGE [None]
  - DRUG DOSE OMISSION [None]
  - HAEMATEMESIS [None]
  - SINUSITIS [None]
  - EAR INFECTION [None]
  - VOMITING [None]
